FAERS Safety Report 9409648 (Version 1)
Quarter: 2013Q2

REPORT INFORMATION
  Report Type: Spontaneous
  Country: US (occurrence: None)
  Receive Date: 20130605
  Receipt Date: 20130605
  Transmission Date: 20140414
  Serious: Yes (Other)
  Sender: FDA-Public Use
  Company Number: UCM201305-000027

PATIENT
  Age: 42 Year
  Sex: Female
  Weight: 134.27 kg

DRUGS (6)
  1. CLONIDINE HCL [Suspect]
     Indication: HYPERTENSION
     Dates: start: 20130523, end: 20130523
  2. MORPHINE [Concomitant]
  3. AMITRYPTYLINE [Concomitant]
  4. GABAPENTIN [Concomitant]
  5. SEROQUEL [Concomitant]
  6. KLONOPIN [Concomitant]

REACTIONS (7)
  - Disorientation [None]
  - Dizziness [None]
  - Migraine [None]
  - Feeling hot [None]
  - Oedema peripheral [None]
  - Pain [None]
  - Presyncope [None]
